FAERS Safety Report 21065888 (Version 1)
Quarter: 2022Q3

REPORT INFORMATION
  Report Type: Spontaneous
  Country: US (occurrence: US)
  Receive Date: 20220711
  Receipt Date: 20220711
  Transmission Date: 20221027
  Serious: Yes (Death)
  Sender: FDA-Public Use
  Company Number: US-PFIZER INC-202200944215

PATIENT
  Age: 73 Year
  Sex: Male
  Weight: 80.8 kg

DRUGS (1)
  1. INLYTA [Suspect]
     Active Substance: AXITINIB
     Indication: Neoplasm malignant
     Dosage: 5 MG, 2X/DAY

REACTIONS (1)
  - Death [Fatal]
